FAERS Safety Report 13745802 (Version 1)
Quarter: 2017Q3

REPORT INFORMATION
  Report Type: Report from Study
  Country: None (occurrence: US)
  Receive Date: 20170712
  Receipt Date: 20170712
  Transmission Date: 20171127
  Serious: No
  Sender: FDA-Public Use
  Company Number: US-IPSEN BIOPHARMACEUTICALS, INC.-2013-3498

PATIENT
  Sex: Female

DRUGS (2)
  1. TOPICAL LIDOCAINE [Concomitant]
     Active Substance: LIDOCAINE
     Indication: PRODUCT USED FOR UNKNOWN INDICATION
     Dosage: NOT REPORTED
     Route: 061
  2. SOMATULINE DEPOT [Suspect]
     Active Substance: LANREOTIDE ACETATE
     Indication: ACROMEGALY
     Dosage: 120 MG
     Route: 058
     Dates: start: 20130627

REACTIONS (6)
  - Myalgia [Unknown]
  - Nausea [Unknown]
  - Fatigue [Unknown]
  - Bone pain [Unknown]
  - Abdominal pain upper [Unknown]
  - Headache [Unknown]

NARRATIVE: CASE EVENT DATE: 2013
